APPROVED DRUG PRODUCT: CARBIDOPA AND LEVODOPA
Active Ingredient: CARBIDOPA; LEVODOPA
Strength: 25MG;100MG
Dosage Form/Route: TABLET;ORAL
Application: A214092 | Product #002 | TE Code: AB
Applicant: SCIEGEN PHARMACEUTICALS INC
Approved: May 7, 2021 | RLD: No | RS: No | Type: RX